FAERS Safety Report 4990016-9 (Version None)
Quarter: 2006Q2

REPORT INFORMATION
  Report Type: 
  Country: None (occurrence: None)
  Receive Date: 20060427
  Receipt Date: 20060413
  Transmission Date: 20061013
  Serious: Yes (Death)
  Sender: FDA-Public Use
  Company Number: 200610459GDS

PATIENT
  Age: 71 Year
  Sex: Male

DRUGS (22)
  1. CIPROFLOXACIN [Suspect]
     Indication: URINARY TRACT INFECTION
     Dosage: 1000 MG, TOTAL DAILY, ORAL
     Route: 048
     Dates: start: 20040106, end: 20040111
  2. ACETAMINOPHEN [Concomitant]
  3. CAPTOPRIL [Concomitant]
  4. COMBIVENT [Concomitant]
  5. DIGOXIN [Concomitant]
  6. DIMENHYDRINATE [Concomitant]
  7. ASPIRIN [Concomitant]
  8. FUROSEMIDE [Concomitant]
  9. HALOPERIDOL [Concomitant]
  10. HEPARIN [Concomitant]
  11. HUMULIN 70/30 [Concomitant]
  12. METOPROLOL [Concomitant]
  13. MIDAZOLAM HCL [Concomitant]
  14. MORPHINE [Concomitant]
  15. POLYSPORIN OINTMENT [Concomitant]
  16. POTASSIUM CHLORIDE [Concomitant]
  17. RANITIDINE [Concomitant]
  18. RISPERIDONE [Concomitant]
  19. SALMETEROL [Concomitant]
  20. SPIRONOLACTONE [Concomitant]
  21. ZOPICLONE [Concomitant]
  22. GENTAMICIN [Concomitant]

REACTIONS (13)
  - HYPERKALAEMIA [None]
  - INTESTINAL ISCHAEMIA [None]
  - LEUKOCYTOSIS [None]
  - MULTI-ORGAN FAILURE [None]
  - MYOCARDIAL INFARCTION [None]
  - NEPHRITIS INTERSTITIAL [None]
  - PRURITUS [None]
  - PYREXIA [None]
  - RASH [None]
  - RENAL IMPAIRMENT [None]
  - RESPIRATORY FAILURE [None]
  - SEPSIS [None]
  - URTICARIA [None]
